FAERS Safety Report 15813639 (Version 2)
Quarter: 2019Q1

REPORT INFORMATION
  Report Type: Spontaneous
  Country: US (occurrence: US)
  Receive Date: 20190111
  Receipt Date: 20190301
  Transmission Date: 20190417
  Serious: Yes (Hospitalization, Other)
  Sender: FDA-Public Use
  Company Number: US-ASTRAZENECA-2019SE03247

PATIENT
  Age: 931 Month
  Sex: Male
  Weight: 90.3 kg

DRUGS (1)
  1. SYMBICORT [Suspect]
     Active Substance: BUDESONIDE\FORMOTEROL FUMARATE DIHYDRATE
     Indication: CHRONIC OBSTRUCTIVE PULMONARY DISEASE
     Dosage: 160/4.5MCG 2 PUFFS TWICE A DAY.
     Route: 055

REACTIONS (13)
  - Prostatomegaly [Unknown]
  - Aspiration [Unknown]
  - Wheezing [Unknown]
  - Blood potassium decreased [Unknown]
  - Dyspnoea [Unknown]
  - Condition aggravated [Unknown]
  - Intentional device misuse [Unknown]
  - Device malfunction [Unknown]
  - Cataract [Unknown]
  - Drug effect incomplete [Unknown]
  - Blood pressure abnormal [Unknown]
  - Intentional product misuse [Unknown]
  - Incorrect dose administered [Unknown]

NARRATIVE: CASE EVENT DATE: 201804
